FAERS Safety Report 10099051 (Version 1)
Quarter: 2014Q2

REPORT INFORMATION
  Report Type: Spontaneous
  Country: US (occurrence: None)
  Receive Date: 20140422
  Receipt Date: 20140422
  Transmission Date: 20141212
  Serious: No
  Sender: FDA-Public Use
  Company Number: None

PATIENT
  Sex: 0

DRUGS (1)
  1. BUPROPION [Suspect]
     Indication: DEPRESSION
     Route: 048
     Dates: start: 20140407, end: 20140421

REACTIONS (6)
  - Depression [None]
  - Thirst [None]
  - Drug withdrawal syndrome [None]
  - Product substitution issue [None]
  - Drug ineffective [None]
  - Tremor [None]
